FAERS Safety Report 20919795 (Version 1)
Quarter: 2022Q2

REPORT INFORMATION
  Report Type: Spontaneous
  Country: US (occurrence: US)
  Receive Date: 20220606
  Receipt Date: 20220606
  Transmission Date: 20220721
  Serious: Yes (Other)
  Sender: FDA-Public Use
  Company Number: US-PFIZER INC-202200794134

PATIENT
  Age: 51 Year
  Sex: Male

DRUGS (3)
  1. XELJANZ XR [Interacting]
     Active Substance: TOFACITINIB CITRATE
     Dosage: UNK
  2. FLUDROCORTISONE [Interacting]
     Active Substance: FLUDROCORTISONE
     Dosage: UNK
  3. TOPROL XL [Interacting]
     Active Substance: METOPROLOL SUCCINATE
     Dosage: UNK

REACTIONS (3)
  - Bradycardia [Unknown]
  - Drug interaction [Unknown]
  - Immunosuppressant drug level increased [Unknown]
